FAERS Safety Report 8841663 (Version 1)
Quarter: 2012Q4

REPORT INFORMATION
  Report Type: Report from Study
  Country: FR (occurrence: FR)
  Receive Date: 20121015
  Receipt Date: 20121015
  Transmission Date: 20130627
  Serious: Yes (Other)
  Sender: FDA-Public Use
  Company Number: FR-UCBSA-061938

PATIENT
  Age: 63 Year
  Sex: Female
  Weight: 80 kg

DRUGS (5)
  1. CIMZIA [Suspect]
     Indication: RHEUMATOID ARTHRITIS
     Dosage: 400MG EVERY TWO WEEKS AND THEN 200MG EVERY TWO WEEKS.
     Route: 058
     Dates: start: 20120426, end: 20120524
  2. CIMZIA [Suspect]
     Indication: RHEUMATOID ARTHRITIS
     Dosage: 400MG EVERY TWO WEEKS AND THEN 200MG EVERY TWO WEEKS.
     Route: 058
     Dates: start: 20120329, end: 20120412
  3. CIMZIA [Suspect]
     Indication: RHEUMATOID ARTHRITIS
     Dosage: 400MG EVERY TWO WEEKS AND THEN 200MG EVERY TWO WEEKS.
     Route: 058
     Dates: start: 20120208, end: 20120222
  4. METOJECT [Concomitant]
     Indication: RHEUMATOID ARTHRITIS
     Route: 058
     Dates: start: 201101
  5. CORTANCYL [Concomitant]
     Indication: RHEUMATOID ARTHRITIS
     Route: 048
     Dates: start: 200806

REACTIONS (1)
  - Pyelonephritis [Recovered/Resolved]
